FAERS Safety Report 16139601 (Version 1)
Quarter: 2019Q2

REPORT INFORMATION
  Report Type: Spontaneous
  Country: GB (occurrence: GB)
  Receive Date: 20190401
  Receipt Date: 20190401
  Transmission Date: 20190711
  Serious: Yes (Hospitalization)
  Sender: FDA-Public Use
  Company Number: GB-ACCORD-116797

PATIENT
  Age: 71 Year
  Sex: Female
  Weight: 50.1 kg

DRUGS (3)
  1. CISPLATIN. [Suspect]
     Active Substance: CISPLATIN
     Indication: SMALL CELL LUNG CANCER
     Dosage: LAST ADMINISTRATION:27-DEC-2018,ALSO TAKEN ON 03-DEC-2018
     Route: 042
     Dates: start: 20181227
  2. SIMVASTATIN. [Concomitant]
     Active Substance: SIMVASTATIN
  3. ETOPOSIDE. [Suspect]
     Active Substance: ETOPOSIDE
     Indication: SMALL CELL LUNG CANCER
     Dosage: ALSO RECEIVED FROM 03-DEC-2018 TO 03-DEC-2018
     Route: 048
     Dates: start: 20181228, end: 20181229

REACTIONS (1)
  - Neutropenic sepsis [Recovering/Resolving]

NARRATIVE: CASE EVENT DATE: 20190106
